FAERS Safety Report 4714606-3 (Version None)
Quarter: 2005Q3

REPORT INFORMATION
  Report Type: 
  Country: None (occurrence: None)
  Receive Date: 20050714
  Receipt Date: 20050714
  Transmission Date: 20060218
  Serious: Yes (Hospitalization)
  Sender: FDA-Public Use
  Company Number: None

PATIENT
  Age: 54 Year
  Sex: Male
  Weight: 82 kg

DRUGS (7)
  1. INTEGRILIN [Suspect]
     Indication: CORONARY ANGIOPLASTY
     Dosage: 2MCG/KG/HR X 4 HOURS INTRAVENOU
     Route: 042
     Dates: start: 20050414, end: 20050414
  2. LOVENOX [Suspect]
     Indication: ACUTE CORONARY SYNDROME
     Dosage: 30MG ONCE INTRAVENOU
     Route: 042
     Dates: start: 20040414, end: 20050414
  3. ENOXAPARIN SODIUM [Concomitant]
  4. EPTIFIBATIDE [Concomitant]
  5. PLAVIX [Concomitant]
  6. ASPIRIN [Concomitant]
  7. LIPITOR [Concomitant]

REACTIONS (4)
  - ABDOMINAL PAIN [None]
  - HYPOTENSION [None]
  - POST PROCEDURAL COMPLICATION [None]
  - RETROPERITONEAL HAEMORRHAGE [None]
